FAERS Safety Report 11542711 (Version 1)
Quarter: 2015Q3

REPORT INFORMATION
  Report Type: Spontaneous
  Country: US (occurrence: US)
  Receive Date: 20150903
  Receipt Date: 20150903
  Transmission Date: 20151125
  Serious: No
  Sender: FDA-Public Use
  Company Number: US-ELI_LILLY_AND_COMPANY-US201205002094

PATIENT
  Age: 69 Year
  Sex: Male

DRUGS (2)
  1. HUMALOG MIX75/25 [Suspect]
     Active Substance: INSULIN LISPRO
     Indication: TYPE 2 DIABETES MELLITUS
     Dosage: 30 U, EACH MORNING
  2. HUMALOG MIX75/25 [Suspect]
     Active Substance: INSULIN LISPRO
     Dosage: 40 U, EACH EVENING

REACTIONS (4)
  - Glycosylated haemoglobin [Unknown]
  - Drug ineffective [Unknown]
  - Diabetes mellitus inadequate control [Recovered/Resolved]
  - Renal impairment [Unknown]

NARRATIVE: CASE EVENT DATE: 201204
